FAERS Safety Report 7655417-9 (Version None)
Quarter: 2011Q3

REPORT INFORMATION
  Report Type: 
  Country: None (occurrence: None)
  Receive Date: 20110801
  Receipt Date: 20110714
  Transmission Date: 20111222
  Serious: Yes (Other)
  Sender: FDA-Public Use
  Company Number: 2011MA008882

PATIENT
  Age: 73 Year
  Sex: Male

DRUGS (2)
  1. EPIRUBICIN HYDROCHLORIDE [Suspect]
     Indication: ADENOCARCINOMA
     Dosage: 75 MG;IV
     Route: 042
  2. OXALIPLATIN [Suspect]
     Indication: ADENOCARCINOMA
     Dosage: 195 MG;IV
     Route: 042

REACTIONS (5)
  - INFUSION SITE EXTRAVASATION [None]
  - ERYTHEMA [None]
  - INFUSION SITE NECROSIS [None]
  - INFUSION SITE PAIN [None]
  - INFUSION SITE INFLAMMATION [None]
